FAERS Safety Report 4697914-4 (Version None)
Quarter: 2005Q2

REPORT INFORMATION
  Report Type: 
  Country: None (occurrence: None)
  Receive Date: 20050621
  Receipt Date: 20050609
  Transmission Date: 20051028
  Serious: No
  Sender: FDA-Public Use
  Company Number: BR-2005-007459

PATIENT
  Age: 45 Year
  Sex: Female

DRUGS (1)
  1. YASMIN [Suspect]
     Indication: ORAL CONTRACEPTION
     Dosage: 1 TAB (S), ORAL
     Route: 048
     Dates: start: 20041001

REACTIONS (3)
  - EAR DISCOMFORT [None]
  - HYPOACUSIS [None]
  - NASAL CONGESTION [None]
